FAERS Safety Report 25905498 (Version 3)
Quarter: 2025Q4

REPORT INFORMATION
  Report Type: Report from Study
  Country: US (occurrence: US)
  Receive Date: 20251010
  Receipt Date: 20251027
  Transmission Date: 20260118
  Serious: Yes (Other)
  Sender: AMGEN
  Company Number: US-AMGEN-USASP2025200701

PATIENT
  Age: 47 Year
  Sex: Male

DRUGS (5)
  1. KRYSTEXXA [Suspect]
     Active Substance: PEGLOTICASE
     Indication: Gouty tophus
     Dosage: 8 MILLIGRAM, Q2WK
     Route: 040
     Dates: start: 20240904
  2. KRYSTEXXA [Suspect]
     Active Substance: PEGLOTICASE
     Dosage: 8 MILLIGRAM, Q2WK
     Route: 040
     Dates: start: 20250923
  3. KRYSTEXXA [Suspect]
     Active Substance: PEGLOTICASE
     Dosage: 6.25 MILLIGRAM, Q2WK
     Route: 040
     Dates: start: 20251007
  4. KRYSTEXXA [Suspect]
     Active Substance: PEGLOTICASE
     Dosage: 1.25 MILLIGRAM, Q2WK, WASTED 6.75MG OF KRYSTEXXA
     Route: 040
     Dates: start: 20251021
  5. SODIUM CHLORIDE [Concomitant]
     Active Substance: SODIUM CHLORIDE
     Dosage: UNK BOLUS 500CC
     Route: 040
     Dates: start: 20251007

REACTIONS (7)
  - Abdominal pain upper [Recovered/Resolved]
  - Oropharyngeal discomfort [Recovered/Resolved]
  - Productive cough [Recovered/Resolved]
  - Blood pressure fluctuation [Recovered/Resolved]
  - Heart rate increased [Recovered/Resolved]
  - Nausea [Recovered/Resolved]
  - Hypersensitivity [Not Recovered/Not Resolved]

NARRATIVE: CASE EVENT DATE: 20251007
